FAERS Safety Report 5135418-5 (Version None)
Quarter: 2006Q4

REPORT INFORMATION
  Report Type: 
  Country: None (occurrence: None)
  Receive Date: 20061026
  Receipt Date: 20060420
  Transmission Date: 20070319
  Serious: Yes (Disabling)
  Sender: FDA-Public Use
  Company Number: DK-GLAXOSMITHKLINE-B0421667A

PATIENT
  Age: 67 Year
  Sex: Male

DRUGS (2)
  1. AVODART [Suspect]
     Indication: PROSTATE EXAMINATION ABNORMAL
     Dosage: .5MG PER DAY
     Route: 048
     Dates: start: 20040901, end: 20050301
  2. NO CONCURRENT MEDICATION [Concomitant]

REACTIONS (12)
  - BLOOD TESTOSTERONE DECREASED [None]
  - CHEST PAIN [None]
  - COUGH [None]
  - ERECTILE DYSFUNCTION [None]
  - GYNAECOMASTIA [None]
  - HEADACHE [None]
  - HEART RATE INCREASED [None]
  - LYMPHADENOPATHY [None]
  - NECK PAIN [None]
  - PROSTATE EXAMINATION ABNORMAL [None]
  - SKIN ODOUR ABNORMAL [None]
  - VOMITING [None]
